FAERS Safety Report 7588453-1 (Version None)
Quarter: 2011Q3

REPORT INFORMATION
  Report Type: 
  Country: None (occurrence: None)
  Receive Date: 20110705
  Receipt Date: 20110624
  Transmission Date: 20111222
  Serious: Yes (Life-Threatening, Hospitalization, Other)
  Sender: FDA-Public Use
  Company Number: US-BAYER-2011-004867

PATIENT
  Age: 31 Year
  Sex: Female
  Weight: 81.633 kg

DRUGS (9)
  1. ALDACTONE [Concomitant]
  2. NSAID'S [Concomitant]
     Dosage: UNK
     Dates: start: 19960101
  3. YASMIN [Suspect]
     Indication: MENSTRUATION IRREGULAR
  4. IBUPROFEN [Concomitant]
     Indication: INFLAMMATION
     Dosage: 1 TABLET DAILY AS NEEDED
     Dates: start: 20070101, end: 20080801
  5. YASMIN [Suspect]
     Indication: ACNE
  6. LORA TAB [Concomitant]
     Indication: ARTHRALGIA
     Dosage: ? OR 1 TABLET TWICE DAILY
     Dates: start: 20070101, end: 20080801
  7. SPIRONOLACTONE [Concomitant]
  8. YASMIN [Suspect]
     Indication: CONTRACEPTION
     Dosage: UNK
     Dates: start: 20070101, end: 20080101
  9. ANTIBIOTICS [Concomitant]
     Dosage: UNK
     Dates: start: 20010101, end: 20100101

REACTIONS (5)
  - PULMONARY EMBOLISM [None]
  - EMOTIONAL DISTRESS [None]
  - GENERAL PHYSICAL HEALTH DETERIORATION [None]
  - PAIN [None]
  - DEEP VEIN THROMBOSIS [None]
